FAERS Safety Report 13372377 (Version 1)
Quarter: 2017Q1

REPORT INFORMATION
  Report Type: Spontaneous
  Country: US (occurrence: US)
  Receive Date: 20170324
  Receipt Date: 20170324
  Transmission Date: 20170429
  Serious: No
  Sender: FDA-Public Use
  Company Number: None

PATIENT
  Age: 54 Year
  Sex: Female

DRUGS (1)
  1. COPAXONE [Suspect]
     Active Substance: GLATIRAMER ACETATE
     Indication: MULTIPLE SCLEROSIS
     Route: 058
     Dates: start: 20161014

REACTIONS (7)
  - Vomiting [None]
  - Erythema [None]
  - Lip swelling [None]
  - Swelling face [None]
  - Throat tightness [None]
  - Flushing [None]
  - Diarrhoea [None]

NARRATIVE: CASE EVENT DATE: 20170213
